FAERS Safety Report 5574229-3 (Version None)
Quarter: 2007Q4

REPORT INFORMATION
  Report Type: 
  Country: None (occurrence: None)
  Receive Date: 20071227
  Receipt Date: 20071226
  Transmission Date: 20080405
  Serious: Yes (Death)
  Sender: FDA-Public Use
  Company Number: JP-BRISTOL-MYERS SQUIBB COMPANY-13977483

PATIENT
  Age: 89 Year
  Sex: Male

DRUGS (8)
  1. TAXOL [Suspect]
     Indication: BLADDER CANCER
     Route: 041
     Dates: start: 20071115, end: 20071115
  2. IFOSFAMIDE [Suspect]
     Indication: BLADDER CANCER
     Route: 041
     Dates: start: 20071115, end: 20071117
  3. AQUPLA [Suspect]
     Indication: BLADDER CANCER
     Route: 041
     Dates: start: 20071115, end: 20071115
  4. DECADRON [Suspect]
     Indication: PREMEDICATION
     Route: 042
     Dates: start: 20071114, end: 20071117
  5. UROMITEXAN [Concomitant]
     Route: 041
     Dates: start: 20071115, end: 20071117
  6. ZANTAC [Concomitant]
     Route: 042
     Dates: start: 20071115, end: 20071115
  7. SEROTONE [Concomitant]
     Route: 042
     Dates: start: 20071115, end: 20071117
  8. RESTAMIN [Concomitant]
     Route: 048
     Dates: start: 20071115, end: 20071115

REACTIONS (2)
  - FEBRILE NEUTROPENIA [None]
  - PNEUMONIA STAPHYLOCOCCAL [None]
